FAERS Safety Report 4450340-5 (Version None)
Quarter: 2004Q3

REPORT INFORMATION
  Report Type: 
  Country: None (occurrence: None)
  Receive Date: 20040914
  Receipt Date: 20040831
  Transmission Date: 20050211
  Serious: Yes (Hospitalization)
  Sender: FDA-Public Use
  Company Number: 2004AP04588

PATIENT
  Age: 77 Year
  Sex: Male

DRUGS (4)
  1. IRESSA [Suspect]
     Indication: LUNG ADENOCARCINOMA
     Dosage: 250 MG DAILY PO
     Route: 048
     Dates: start: 20040707, end: 20040819
  2. VINORELBINE TARTRATE [Suspect]
     Dosage: 30 MG
     Dates: start: 20020501
  3. PICIBANIL [Concomitant]
  4. GEMCITABINE [Concomitant]

REACTIONS (2)
  - DRUG INEFFECTIVE [None]
  - ILEUS PARALYTIC [None]
